FAERS Safety Report 18255522 (Version 3)
Quarter: 2020Q4

REPORT INFORMATION
  Report Type: Report from Study
  Country: US (occurrence: US)
  Receive Date: 20200911
  Receipt Date: 20201104
  Transmission Date: 20210113
  Serious: Yes (Other)
  Sender: FDA-Public Use
  Company Number: US-TAKEDA-2020TUS038154

PATIENT
  Sex: Male

DRUGS (2)
  1. VEDOLIZUMAB [Suspect]
     Active Substance: VEDOLIZUMAB
     Indication: CROHN^S DISEASE
     Dosage: 300 MILLIGRAM, Q4WEEKS
     Route: 042
  2. VEDOLIZUMAB [Suspect]
     Active Substance: VEDOLIZUMAB
     Indication: RECTAL HAEMORRHAGE
     Dosage: 300 MILLIGRAM, Q8WEEKS
     Route: 042

REACTIONS (6)
  - Off label use [Unknown]
  - Malignant melanoma [Unknown]
  - Product dose omission issue [Unknown]
  - Faeces soft [Unknown]
  - Crohn^s disease [Unknown]
  - Squamous cell carcinoma [Unknown]
